FAERS Safety Report 10399786 (Version 2)
Quarter: 2014Q3

REPORT INFORMATION
  Report Type: Spontaneous
  Country: US (occurrence: US)
  Receive Date: 20140821
  Receipt Date: 20140821
  Transmission Date: 20150326
  Serious: Yes (Death, Hospitalization, Disabling)
  Sender: FDA-Public Use
  Company Number: US-GLAXOSMITHKLINE-A0770316A

PATIENT
  Sex: Female
  Weight: 120.5 kg

DRUGS (6)
  1. AVANDIA [Suspect]
     Active Substance: ROSIGLITAZONE MALEATE
     Indication: DIABETES MELLITUS
     Dosage: 8MG PER DAY
     Route: 048
     Dates: start: 200004, end: 200701
  2. TOPROL XL [Concomitant]
     Active Substance: METOPROLOL SUCCINATE
  3. GLYBURIDE. [Concomitant]
     Active Substance: GLYBURIDE
  4. AVANDAMET [Suspect]
     Active Substance: METFORMIN HYDROCHLORIDE\ROSIGLITAZONE MALEATE
     Indication: DIABETES MELLITUS
     Route: 048
     Dates: start: 200302, end: 200501
  5. GLUCOPHAGE [Concomitant]
     Active Substance: METFORMIN HYDROCHLORIDE
  6. LANTUS [Concomitant]
     Active Substance: INSULIN GLARGINE

REACTIONS (13)
  - Atrial fibrillation [Unknown]
  - Cardiac failure congestive [Unknown]
  - Congestive cardiomyopathy [Fatal]
  - Pericardial effusion [Unknown]
  - Coronary artery disease [Unknown]
  - Pulmonary oedema [Unknown]
  - Pulmonary congestion [Unknown]
  - Arterial occlusive disease [Unknown]
  - Myocardial ischaemia [Fatal]
  - Pleural effusion [Unknown]
  - Cardio-respiratory arrest [Fatal]
  - Angina pectoris [Unknown]
  - Arteriosclerosis coronary artery [Unknown]
